FAERS Safety Report 5522150-9 (Version None)
Quarter: 2007Q4

REPORT INFORMATION
  Report Type: 
  Country: None (occurrence: None)
  Receive Date: 20071116
  Receipt Date: 20071107
  Transmission Date: 20080405
  Serious: Yes (Hospitalization)
  Sender: FDA-Public Use
  Company Number: 2003-09-2392

PATIENT
  Age: 59 Year
  Sex: Male
  Weight: 56 kg

DRUGS (12)
  1. REBETOL [Suspect]
     Indication: HEPATITIS C
     Dosage: PO ; 800 MG;QD;PO ; 600 MG;QD;PO
     Route: 048
     Dates: start: 20030501, end: 20030812
  2. REBETOL [Suspect]
     Indication: HEPATITIS C
     Dosage: PO ; 800 MG;QD;PO ; 600 MG;QD;PO
     Route: 048
     Dates: start: 20030501, end: 20030911
  3. REBETOL [Suspect]
     Indication: HEPATITIS C
     Dosage: PO ; 800 MG;QD;PO ; 600 MG;QD;PO
     Route: 048
     Dates: start: 20030812, end: 20030911
  4. INTRON A [Suspect]
     Indication: HEPATITIS C
     Dosage: TIW;IM ; 10 MIU;QD;IM ; 6 MIU;QD;IM ; 6 MIU;QD;IM ; 3 MIU;TIW;IM
     Route: 030
     Dates: start: 20030501, end: 20030505
  5. INTRON A [Suspect]
     Indication: HEPATITIS C
     Dosage: TIW;IM ; 10 MIU;QD;IM ; 6 MIU;QD;IM ; 6 MIU;QD;IM ; 3 MIU;TIW;IM
     Route: 030
     Dates: start: 20030507, end: 20030517
  6. INTRON A [Suspect]
     Indication: HEPATITIS C
     Dosage: TIW;IM ; 10 MIU;QD;IM ; 6 MIU;QD;IM ; 6 MIU;QD;IM ; 3 MIU;TIW;IM
     Route: 030
     Dates: start: 20030519, end: 20030611
  7. INTRON A [Suspect]
     Indication: HEPATITIS C
     Dosage: TIW;IM ; 10 MIU;QD;IM ; 6 MIU;QD;IM ; 6 MIU;QD;IM ; 3 MIU;TIW;IM
     Route: 030
     Dates: start: 20030501, end: 20030916
  8. INTRON A [Suspect]
     Indication: HEPATITIS C
     Dosage: TIW;IM ; 10 MIU;QD;IM ; 6 MIU;QD;IM ; 6 MIU;QD;IM ; 3 MIU;TIW;IM
     Route: 030
     Dates: start: 20030613, end: 20030916
  9. GLYCYRON [Concomitant]
  10. URSOSAN [Concomitant]
  11. GASTER [Concomitant]
  12. DIASTASE [Concomitant]

REACTIONS (16)
  - CULTURE URINE POSITIVE [None]
  - DECREASED APPETITE [None]
  - EXTRADURAL ABSCESS [None]
  - HAEMOGLOBIN DECREASED [None]
  - HYPOALBUMINAEMIA [None]
  - INTERVERTEBRAL DISCITIS [None]
  - MALAISE [None]
  - NASOPHARYNGITIS [None]
  - NEUTROPHIL COUNT DECREASED [None]
  - OSTEOLYSIS [None]
  - RED BLOOD CELL COUNT DECREASED [None]
  - SCIATICA [None]
  - SPONDYLITIS [None]
  - STAPHYLOCOCCAL INFECTION [None]
  - URINARY TRACT INFECTION [None]
  - WHITE BLOOD CELL COUNT DECREASED [None]
